FAERS Safety Report 9612456 (Version 3)
Quarter: 2014Q1

REPORT INFORMATION
  Report Type: Spontaneous
  Country: US (occurrence: US)
  Receive Date: 20131010
  Receipt Date: 20140123
  Transmission Date: 20141002
  Serious: Yes (Hospitalization, Other)
  Sender: FDA-Public Use
  Company Number: US-UCBSA-099272

PATIENT
  Age: 21 Year
  Sex: Male
  Weight: 72.57 kg

DRUGS (2)
  1. KEPPRA [Suspect]
     Route: 048
     Dates: start: 201306
  2. VIMPAT [Concomitant]
     Indication: EPILEPSY
     Dosage: 100 MG
     Route: 048
     Dates: start: 201309

REACTIONS (4)
  - Convulsion [Recovering/Resolving]
  - Brain injury [Unknown]
  - Insomnia [Not Recovered/Not Resolved]
  - Headache [Not Recovered/Not Resolved]
